FAERS Safety Report 13932872 (Version 3)
Quarter: 2017Q3

REPORT INFORMATION
  Report Type: Report from Study
  Country: None (occurrence: US)
  Receive Date: 20170904
  Receipt Date: 20170929
  Transmission Date: 20171127
  Serious: Yes (Other)
  Sender: FDA-Public Use
  Company Number: US-ABBVIE-17K-163-2089843-00

PATIENT
  Age: 71 Year
  Sex: Male
  Weight: 86.26 kg

DRUGS (6)
  1. HUMIRA [Suspect]
     Active Substance: ADALIMUMAB
     Indication: PSORIASIS
     Route: 058
     Dates: start: 20160908, end: 20170715
  2. FISH OIL [Concomitant]
     Active Substance: FISH OIL
     Indication: NUTRITIONAL SUPPLEMENTATION
  3. VITAMIN B12 [Concomitant]
     Active Substance: CYANOCOBALAMIN
     Indication: VITAMIN SUPPLEMENTATION
  4. DOXYCYCLINE. [Concomitant]
     Active Substance: DOXYCYCLINE
     Indication: ROSACEA
  5. ASPIRIN. [Concomitant]
     Active Substance: ASPIRIN
     Indication: PRODUCT USED FOR UNKNOWN INDICATION
  6. ALLOPURINOL. [Concomitant]
     Active Substance: ALLOPURINOL
     Indication: GOUT

REACTIONS (5)
  - Pruritus [Recovered/Resolved]
  - Vitamin D decreased [Recovering/Resolving]
  - Psoriasis [Not Recovered/Not Resolved]
  - Nail disorder [Unknown]
  - Benign neoplasm of skin [Recovered/Resolved]

NARRATIVE: CASE EVENT DATE: 2017
